FAERS Safety Report 6424811-6 (Version None)
Quarter: 2009Q4

REPORT INFORMATION
  Report Type: 
  Country: None (occurrence: None)
  Receive Date: 20091103
  Receipt Date: 20091020
  Transmission Date: 20100525
  Serious: Yes (Other)
  Sender: FDA-Public Use
  Company Number: PHEH2009US14194

PATIENT
  Sex: Female

DRUGS (8)
  1. TEGRETOL [Suspect]
     Indication: BIPOLAR DISORDER
     Dosage: 200-400MG, DAILY
     Dates: start: 20020101
  2. TEGRETOL [Suspect]
     Indication: AFFECTIVE DISORDER
     Dosage: 600 MG, DAILY
     Dates: start: 20080101
  3. TEGRETOL [Suspect]
     Dosage: 1000 MG, (400MG IN AM + 600MG IN PM)
  4. WELLBUTRIN [Concomitant]
     Indication: BIPOLAR DISORDER
     Dosage: 150 MG, DAILY
  5. CELEXA [Concomitant]
     Indication: BIPOLAR DISORDER
     Dosage: 40 MG, DAILY IN THE AM
  6. PRILOSEC [Concomitant]
     Indication: GASTROOESOPHAGEAL REFLUX DISEASE
     Dosage: UNK, DAILY
  7. SYNTHROID [Concomitant]
     Indication: HYPOTHYROIDISM
     Dosage: 0.175 UNK, DAILY
  8. CLARITIN [Concomitant]
     Indication: SEASONAL ALLERGY

REACTIONS (1)
  - CATARACT [None]
